FAERS Safety Report 10223896 (Version 2)
Quarter: 2014Q2

REPORT INFORMATION
  Report Type: Spontaneous
  Country: US (occurrence: US)
  Receive Date: 20140609
  Receipt Date: 20140609
  Transmission Date: 20141212
  Serious: No
  Sender: FDA-Public Use
  Company Number: US-DRREDDYS-USA/USA/14/0039160

PATIENT
  Age: 71 Year
  Sex: Female
  Weight: 136.07 kg

DRUGS (8)
  1. FEXOFENADINE HCL  OTC [Suspect]
     Indication: HYPERSENSITIVITY
     Route: 048
     Dates: start: 20140317
  2. FEXOFENADINE HCL  OTC [Suspect]
     Indication: SINUS CONGESTION
  3. IPRATROPIUM [Suspect]
     Indication: HYPERSENSITIVITY
     Dosage: 4 SPRAYS DAILY (2 SPRAYS IN EACH NOSTRIL)
     Route: 045
     Dates: start: 20140317
  4. IPRATROPIUM [Suspect]
     Indication: SINUS CONGESTION
  5. LISINOPRIL [Concomitant]
     Indication: PRODUCT USED FOR UNKNOWN INDICATION
     Route: 065
  6. BABY ASPIRIN [Concomitant]
     Indication: PRODUCT USED FOR UNKNOWN INDICATION
     Route: 065
  7. KLONOPIN [Concomitant]
     Indication: PRODUCT USED FOR UNKNOWN INDICATION
     Route: 065
  8. VITAMIN D [Concomitant]
     Indication: PRODUCT USED FOR UNKNOWN INDICATION
     Route: 065

REACTIONS (2)
  - Somnolence [Recovering/Resolving]
  - Nasal dryness [Recovering/Resolving]
